FAERS Safety Report 5341522-9 (Version None)
Quarter: 2007Q2

REPORT INFORMATION
  Report Type: 
  Country: None (occurrence: None)
  Receive Date: 20070529
  Receipt Date: 20070529
  Transmission Date: 20071010
  Serious: Yes (Hospitalization)
  Sender: FDA-Public Use
  Company Number: None

PATIENT
  Age: 86 Year
  Sex: Female

DRUGS (7)
  1. DYAZIDE [Suspect]
     Indication: HYPERTENSION
     Dosage: 1 CAP PO Q DAY
     Route: 048
  2. SYNTHROID [Concomitant]
  3. BONIVA [Concomitant]
  4. CARTIA XT [Concomitant]
  5. LORAZEPAM [Concomitant]
  6. CA [Concomitant]
  7. PRED [Concomitant]

REACTIONS (2)
  - CONFUSIONAL STATE [None]
  - MENTAL STATUS CHANGES [None]
